FAERS Safety Report 7782442-X (Version None)
Quarter: 2011Q3

REPORT INFORMATION
  Report Type: 
  Country: None (occurrence: None)
  Receive Date: 20110928
  Receipt Date: 20110921
  Transmission Date: 20111222
  Serious: Yes (Hospitalization)
  Sender: FDA-Public Use
  Company Number: US-BIOGENIDEC-2011BI032134

PATIENT
  Sex: Female

DRUGS (3)
  1. NUVIGIL [Concomitant]
     Indication: FATIGUE
  2. TYSABRI [Suspect]
     Indication: MULTIPLE SCLEROSIS
     Route: 042
     Dates: start: 20080530
  3. AMPYRA [Concomitant]
     Indication: GAIT DISTURBANCE

REACTIONS (1)
  - TRIGEMINAL NEURALGIA [None]
